FAERS Safety Report 20844454 (Version 1)
Quarter: 2022Q2

REPORT INFORMATION
  Report Type: Report from Study
  Country: US (occurrence: None)
  Receive Date: 20220518
  Receipt Date: 20220518
  Transmission Date: 20220720
  Serious: Yes (Other)
  Sender: FDA-Public Use
  Company Number: 2022A183146

PATIENT
  Sex: Female

DRUGS (1)
  1. LYNPARZA [Suspect]
     Active Substance: OLAPARIB
     Indication: Breast cancer female
     Route: 048

REACTIONS (6)
  - Anaphylactic reaction [Unknown]
  - Throat irritation [Unknown]
  - Skin warm [Unknown]
  - Skin swelling [Unknown]
  - Pain of skin [Unknown]
  - Erythema [Unknown]
